FAERS Safety Report 5331895-5 (Version None)
Quarter: 2007Q2

REPORT INFORMATION
  Report Type: 
  Country: None (occurrence: None)
  Receive Date: 20070523
  Receipt Date: 20070518
  Transmission Date: 20071010
  Serious: No
  Sender: FDA-Public Use
  Company Number: JP-SP-2007-01677

PATIENT
  Age: 86 Year
  Sex: Male

DRUGS (1)
  1. IMMUCYST [Suspect]
     Indication: CARCINOMA IN SITU OF BLADDER
     Route: 043
     Dates: start: 20070119, end: 20070313

REACTIONS (2)
  - DYSURIA [None]
  - POLLAKIURIA [None]
